FAERS Safety Report 4926186-8 (Version None)
Quarter: 2006Q1

REPORT INFORMATION
  Report Type: 
  Country: None (occurrence: None)
  Receive Date: 20060224
  Receipt Date: 20060224
  Transmission Date: 20060701
  Serious: Yes (Life-Threatening, Hospitalization)
  Sender: FDA-Public Use
  Company Number: None

PATIENT
  Age: 65 Year
  Sex: Male

DRUGS (3)
  1. TERAZOSIN   2MG [Suspect]
     Dosage: 1 CAP PO BID
     Route: 048
     Dates: start: 20040101, end: 20060125
  2. QUINAPRIL [Concomitant]
  3. ATENOLOL [Concomitant]

REACTIONS (1)
  - BLOOD PRESSURE DECREASED [None]
